FAERS Safety Report 14133756 (Version 1)
Quarter: 2017Q4

REPORT INFORMATION
  Report Type: Spontaneous
  Country: US (occurrence: US)
  Receive Date: 20171027
  Receipt Date: 20171027
  Transmission Date: 20180321
  Serious: No
  Sender: FDA-Public Use
  Company Number: US-PFIZER INC-2017458683

PATIENT
  Age: 66 Year
  Sex: Female
  Weight: 83.1 kg

DRUGS (1)
  1. IBRANCE [Suspect]
     Active Substance: PALBOCICLIB
     Indication: BREAST CANCER
     Dosage: UNKNOWN DOSE, ONCE A DAY IN THE EVENING.
     Route: 048
     Dates: start: 201709

REACTIONS (4)
  - Increased appetite [Unknown]
  - Hair growth abnormal [Unknown]
  - Therapeutic response unexpected [Unknown]
  - Nausea [Unknown]

NARRATIVE: CASE EVENT DATE: 2017
